FAERS Safety Report 5045938-X (Version None)
Quarter: 2006Q3

REPORT INFORMATION
  Report Type: 
  Country: None (occurrence: None)
  Receive Date: 20060710
  Receipt Date: 20060703
  Transmission Date: 20061208
  Serious: Yes (Hospitalization)
  Sender: FDA-Public Use
  Company Number: FR-JNJFOC-20060700126

PATIENT
  Age: 47 Year
  Sex: Female

DRUGS (8)
  1. RISPERDAL [Suspect]
     Indication: DRUG USE FOR UNKNOWN INDICATION
     Route: 048
     Dates: start: 20060531, end: 20060615
  2. NOVATREX [Concomitant]
  3. TERCIAN [Concomitant]
     Dosage: DOSE INCREASED
  4. TERCIAN [Concomitant]
  5. TEMESTA [Concomitant]
     Dosage: DOSE INCREASED
  6. TEMESTA [Concomitant]
  7. ZYPREXA [Concomitant]
  8. ZYPREXA [Concomitant]

REACTIONS (2)
  - BLOOD CREATININE INCREASED [None]
  - PANCYTOPENIA [None]
